FAERS Safety Report 17046449 (Version 2)
Quarter: 2019Q4

REPORT INFORMATION
  Report Type: Report from Study
  Country: US (occurrence: US)
  Receive Date: 20191119
  Receipt Date: 20191205
  Transmission Date: 20200122
  Serious: Yes (Other)
  Sender: FDA-Public Use
  Company Number: US-ROCHE-2395518

PATIENT
  Sex: Female

DRUGS (1)
  1. OCREVUS [Suspect]
     Active Substance: OCRELIZUMAB
     Indication: MULTIPLE SCLEROSIS
     Dosage: SUBSEQUENT DOSE OF 600 MG EVERY 6 MONTHS? MOST RECENT INFUSION WAS ON 23/DEC/2018
     Route: 042
     Dates: start: 20180328

REACTIONS (14)
  - Peripheral swelling [Unknown]
  - Asthenia [Not Recovered/Not Resolved]
  - Pain in extremity [Not Recovered/Not Resolved]
  - Retching [Not Recovered/Not Resolved]
  - Gait disturbance [Unknown]
  - Pain [Not Recovered/Not Resolved]
  - Dysphagia [Not Recovered/Not Resolved]
  - Speech disorder [Unknown]
  - Central nervous system lesion [Unknown]
  - Micturition disorder [Unknown]
  - Memory impairment [Unknown]
  - Pollakiuria [Unknown]
  - Fungal infection [Unknown]
  - Cough [Not Recovered/Not Resolved]
